FAERS Safety Report 7631702-1 (Version None)
Quarter: 2011Q3

REPORT INFORMATION
  Report Type: 
  Country: None (occurrence: None)
  Receive Date: 20110725
  Receipt Date: 20110712
  Transmission Date: 20111222
  Serious: Yes (Other)
  Sender: FDA-Public Use
  Company Number: MX-ELI_LILLY_AND_COMPANY-MX201107003819

PATIENT
  Age: 51 Year
  Sex: Female

DRUGS (2)
  1. FORTEO [Suspect]
     Indication: OSTEOPOROSIS
     Dosage: 3 ML, SINGLE
     Route: 058
     Dates: start: 20110711, end: 20110711
  2. DICLOFENAC SODIUM [Concomitant]

REACTIONS (17)
  - FEELING HOT [None]
  - BURNING SENSATION [None]
  - FATIGUE [None]
  - FEELING ABNORMAL [None]
  - OVERDOSE [None]
  - ERYTHEMA [None]
  - ABDOMINAL PAIN UPPER [None]
  - AGITATION [None]
  - FLATULENCE [None]
  - THROAT IRRITATION [None]
  - NAUSEA [None]
  - LUNG DISORDER [None]
  - DYSPEPSIA [None]
  - VOMITING [None]
  - DIZZINESS [None]
  - DYSPNOEA [None]
  - ABDOMINAL DISCOMFORT [None]
